FAERS Safety Report 6303601-9 (Version None)
Quarter: 2009Q3

REPORT INFORMATION
  Report Type: 
  Country: None (occurrence: None)
  Receive Date: 20090807
  Receipt Date: 20090807
  Transmission Date: 20100115
  Serious: Yes (Other)
  Sender: FDA-Public Use
  Company Number: None

PATIENT
  Sex: Female
  Weight: 67.1324 kg

DRUGS (1)
  1. NIFEDEPINE ER 30 MG KU260 PINK [Suspect]
     Indication: HYPERTENSION
     Dosage: 30 MB 1 X DAY PO
     Route: 048
     Dates: start: 20090730, end: 20090731

REACTIONS (4)
  - HEADACHE [None]
  - MUSCULOSKELETAL STIFFNESS [None]
  - PAIN [None]
  - PRODUCT SUBSTITUTION ISSUE [None]
